FAERS Safety Report 12187212 (Version 1)
Quarter: 2016Q1

REPORT INFORMATION
  Report Type: Spontaneous
  Country: FR (occurrence: FR)
  Receive Date: 20160317
  Receipt Date: 20160317
  Transmission Date: 20160526
  Serious: Yes (Hospitalization)
  Sender: FDA-Public Use
  Company Number: FR-GALDERMA-FR16001515

PATIENT
  Age: 16 Year
  Sex: Female

DRUGS (7)
  1. EXOMUC [Suspect]
     Active Substance: ACETYLCYSTEINE
     Indication: BRONCHIAL DISORDER
     Route: 048
     Dates: start: 20160118, end: 20160122
  2. EPIDUO [Suspect]
     Active Substance: ADAPALENE\BENZOYL PEROXIDE
     Indication: ACNE
     Dosage: 0.1%-2.5%
     Route: 061
     Dates: start: 201509
  3. RHINEDRINE [Suspect]
     Active Substance: BENZODODECINIUM BROMIDE
     Indication: NASOPHARYNGITIS
     Route: 045
     Dates: start: 20160118, end: 20160122
  4. SNAIL CREAM [Suspect]
     Active Substance: DIMETHICONE
     Indication: DRY SKIN
     Route: 061
  5. DRILL [Suspect]
     Active Substance: AMMONIUM GLYCYRRHIZATE\ASCORBIC ACID\CHLORHEXIDINE GLUCONATE\TETRACAINE HYDROCHLORIDE
     Indication: OROPHARYNGEAL PAIN
     Route: 048
     Dates: start: 20160118, end: 20160122
  6. JASMINELLE [Suspect]
     Active Substance: DROSPIRENONE
     Indication: ACNE
     Route: 048
     Dates: start: 201509
  7. GEL DUREX PLAY MASSAGE [Suspect]
     Active Substance: ALOE VERA FLOWER
     Indication: MASSAGE
     Route: 061
     Dates: start: 20160129, end: 20160205

REACTIONS (1)
  - Stevens-Johnson syndrome [Recovering/Resolving]

NARRATIVE: CASE EVENT DATE: 20160205
